FAERS Safety Report 9026520 (Version 1)
Quarter: 2013Q1

REPORT INFORMATION
  Report Type: Report from Study
  Country: US (occurrence: US)
  Receive Date: 20130123
  Receipt Date: 20130123
  Transmission Date: 20140127
  Serious: Yes (Hospitalization, Other)
  Sender: FDA-Public Use
  Company Number: US-JNJFOC-20130111123

PATIENT
  Sex: Male
  Weight: 104.33 kg

DRUGS (5)
  1. REMICADE [Suspect]
     Indication: RHEUMATOID ARTHRITIS
     Dosage: DOSE: 11 VIALS
     Route: 042
     Dates: start: 2008
  2. MULTAQ [Suspect]
     Indication: ATRIAL FIBRILLATION
     Route: 048
  3. METHOTREXATE [Concomitant]
     Route: 030
  4. NEXIUM [Concomitant]
     Indication: DYSPEPSIA
     Route: 048
  5. ALTACE [Concomitant]
     Indication: BLOOD PRESSURE
     Route: 048

REACTIONS (5)
  - Nephrolithiasis [Unknown]
  - Atrial fibrillation [Not Recovered/Not Resolved]
  - Hypersensitivity [Recovered/Resolved]
  - Chest pain [Recovered/Resolved]
  - Palpitations [Recovered/Resolved]
